FAERS Safety Report 10533332 (Version 1)
Quarter: 2014Q4

REPORT INFORMATION
  Report Type: Spontaneous
  Country: US (occurrence: None)
  Receive Date: 20141021
  Receipt Date: 20141021
  Transmission Date: 20150529
  Serious: No
  Sender: FDA-Public Use
  Company Number: None

PATIENT
  Age: 65 Year
  Sex: Male

DRUGS (2)
  1. RIBAVIRIN 200 ZYDUS [Suspect]
     Active Substance: RIBAVIRIN
     Indication: ILL-DEFINED DISORDER
     Route: 048
     Dates: start: 20140918, end: 20141020
  2. SOVALDI [Suspect]
     Active Substance: SOFOSBUVIR
     Indication: ILL-DEFINED DISORDER
     Route: 048
     Dates: start: 20140918, end: 20141020

REACTIONS (1)
  - Dizziness [None]
